FAERS Safety Report 5296545-5 (Version None)
Quarter: 2007Q2

REPORT INFORMATION
  Report Type: 
  Country: None (occurrence: None)
  Receive Date: 20070413
  Receipt Date: 20070402
  Transmission Date: 20071010
  Serious: Yes (Death, Other)
  Sender: FDA-Public Use
  Company Number: US-PFIZER INC-2006134011

PATIENT
  Sex: Male

DRUGS (2)
  1. CELEBREX [Suspect]
     Indication: PAIN
     Dates: start: 19990101, end: 20010408
  2. VIOXX [Suspect]
     Dates: start: 19990601, end: 20010408

REACTIONS (1)
  - ARTERIOSCLEROSIS CORONARY ARTERY [None]
